FAERS Safety Report 5322719-0 (Version None)
Quarter: 2007Q2

REPORT INFORMATION
  Report Type: 
  Country: None (occurrence: None)
  Receive Date: 20070511
  Receipt Date: 20070503
  Transmission Date: 20071010
  Serious: Yes (Death, Other)
  Sender: FDA-Public Use
  Company Number: US-PFIZER INC-2006112511

PATIENT
  Sex: Female
  Weight: 85.3 kg

DRUGS (2)
  1. BEXTRA [Suspect]
     Indication: OSTEOARTHRITIS
     Dosage: DAILY DOSE:20MG
     Dates: start: 20030627, end: 20040301
  2. BEXTRA [Suspect]
     Indication: ARTHRITIS

REACTIONS (5)
  - AORTIC VALVE DISEASE [None]
  - ATRIOVENTRICULAR BLOCK SECOND DEGREE [None]
  - CARDIAC FAILURE [None]
  - CARDIAC MURMUR [None]
  - MITRAL VALVE DISEASE [None]
